FAERS Safety Report 6975105-1 (Version None)
Quarter: 2010Q3

REPORT INFORMATION
  Report Type: 
  Country: None (occurrence: None)
  Receive Date: 20100910
  Receipt Date: 20090210
  Transmission Date: 20110219
  Serious: No
  Sender: FDA-Public Use
  Company Number: US-WYE-H08155009

PATIENT
  Sex: Male

DRUGS (1)
  1. ADVIL PM [Suspect]
     Dosage: 2 LIQUI GELS X 1
     Route: 048
     Dates: start: 20090209, end: 20090209

REACTIONS (3)
  - DRUG EFFECT PROLONGED [None]
  - NAUSEA [None]
  - SOMNOLENCE [None]
